FAERS Safety Report 9461607 (Version 1)
Quarter: 2013Q3

REPORT INFORMATION
  Report Type: Spontaneous
  Country: JP (occurrence: JP)
  Receive Date: 20130816
  Receipt Date: 20130816
  Transmission Date: 20140515
  Serious: Yes (Hospitalization, Other)
  Sender: FDA-Public Use
  Company Number: JP-PFIZER INC-2013139667

PATIENT
  Age: 67 Year
  Sex: Female
  Weight: 37.9 kg

DRUGS (3)
  1. RIFAMPICIN [Suspect]
     Indication: PULMONARY TUBERCULOSIS
     Dosage: 300 MG/DAY
  2. ETHAMBUTOL [Suspect]
     Indication: PULMONARY TUBERCULOSIS
     Dosage: 500 MG/DAY
  3. LEVOFLOXACIN [Concomitant]
     Indication: COUGH
     Dosage: 500 MG/DAY

REACTIONS (4)
  - Glomerulonephritis [Recovering/Resolving]
  - Pyrexia [Recovered/Resolved]
  - Malaise [Unknown]
  - Decreased appetite [Unknown]
